FAERS Safety Report 9245521 (Version 1)
Quarter: 2013Q2

REPORT INFORMATION
  Report Type: Spontaneous
  Country: US (occurrence: US)
  Receive Date: 20130422
  Receipt Date: 20130422
  Transmission Date: 20140414
  Serious: No
  Sender: FDA-Public Use
  Company Number: US-TEVA-399295USA

PATIENT
  Age: 82 Year
  Sex: Female

DRUGS (2)
  1. PROAIR HFA [Suspect]
     Indication: DYSPNOEA
     Dates: start: 20130319, end: 20130325
  2. NORVASC [Concomitant]
     Indication: HYPERTENSION

REACTIONS (3)
  - Productive cough [Unknown]
  - Increased upper airway secretion [Recovered/Resolved]
  - Oropharyngeal pain [Recovered/Resolved]
